FAERS Safety Report 5590955-4 (Version None)
Quarter: 2007Q4

REPORT INFORMATION
  Report Type: 
  Country: None (occurrence: None)
  Receive Date: 20071212
  Receipt Date: 20071005
  Transmission Date: 20080405
  Serious: No
  Sender: FDA-Public Use
  Company Number: 2007RL000442

PATIENT
  Age: 17 Year
  Sex: Male

DRUGS (2)
  1. LOVAZA [Suspect]
     Indication: BIPOLAR DISORDER
     Dosage: 4 GM;QD;PO
     Route: 048
     Dates: start: 20061201
  2. LOVAZA [Suspect]
     Indication: LIPIDS ABNORMAL
     Dosage: 4 GM;QD;PO
     Route: 048
     Dates: start: 20061201

REACTIONS (3)
  - ERUCTATION [None]
  - OFF LABEL USE [None]
  - STOMACH DISCOMFORT [None]
